FAERS Safety Report 18026284 (Version 2)
Quarter: 2020Q3

REPORT INFORMATION
  Report Type: Spontaneous
  Country: US (occurrence: US)
  Receive Date: 20200715
  Receipt Date: 20200902
  Transmission Date: 20201103
  Serious: Yes (Hospitalization)
  Sender: FDA-Public Use
  Company Number: US-INCYTE CORPORATION-2020IN006653

PATIENT

DRUGS (3)
  1. JAKAFI [Suspect]
     Active Substance: RUXOLITINIB
     Indication: GASTROINTESTINAL DISORDER
     Dosage: 5 MILLIGRAM, TID
     Route: 048
     Dates: start: 202004
  2. JAKAFI [Suspect]
     Active Substance: RUXOLITINIB
     Dosage: TOTAL OF 20 MG/D
     Route: 065
     Dates: start: 20200819
  3. JAKAFI [Suspect]
     Active Substance: RUXOLITINIB
     Dosage: 7.5 MILLIGRAM, BID (TOTAL OF 15MG/D)
     Route: 048
     Dates: start: 202007, end: 20200819

REACTIONS (5)
  - Drug ineffective for unapproved indication [Unknown]
  - Wrong technique in product usage process [Unknown]
  - Product use issue [Unknown]
  - Off label use [Unknown]
  - Colitis [Unknown]

NARRATIVE: CASE EVENT DATE: 20200429
